FAERS Safety Report 21181808 (Version 1)
Quarter: 2022Q3

REPORT INFORMATION
  Report Type: Spontaneous
  Country: US (occurrence: US)
  Receive Date: 20220806
  Receipt Date: 20220806
  Transmission Date: 20221027
  Serious: Yes (Other)
  Sender: FDA-Public Use
  Company Number: US-AMGEN-USASP2022130696

PATIENT
  Sex: Male

DRUGS (1)
  1. REPATHA [Suspect]
     Active Substance: EVOLOCUMAB
     Indication: Product used for unknown indication
     Dosage: UNK
     Route: 065

REACTIONS (19)
  - Neuropathy peripheral [Unknown]
  - Hepatic pain [Unknown]
  - Abdominal pain upper [Unknown]
  - Pruritus [Unknown]
  - Muscle twitching [Unknown]
  - Nasal congestion [Unknown]
  - Pancreatic disorder [Unknown]
  - Oropharyngeal pain [Unknown]
  - Gastrointestinal pain [Unknown]
  - Cardiac disorder [Unknown]
  - Transplant [Unknown]
  - Impaired healing [Unknown]
  - Renal disorder [Unknown]
  - Product administration interrupted [Unknown]
  - Muscle spasms [Unknown]
  - Influenza like illness [Unknown]
  - Back pain [Unknown]
  - Blood glucose increased [Recovered/Resolved]
  - Fatigue [Unknown]
